FAERS Safety Report 6793525-5 (Version None)
Quarter: 2010Q2

REPORT INFORMATION
  Report Type: 
  Country: None (occurrence: None)
  Receive Date: 20100624
  Receipt Date: 20100617
  Transmission Date: 20101027
  Serious: Yes (Life-Threatening, Hospitalization, Other)
  Sender: FDA-Public Use
  Company Number: US-MYLANLABS-2010S1007839

PATIENT
  Age: 28 Year
  Sex: Female

DRUGS (12)
  1. CLOZAPINE [Suspect]
     Indication: SCHIZOAFFECTIVE DISORDER
     Route: 048
     Dates: start: 20090701, end: 20100427
  2. CLOZAPINE [Suspect]
     Indication: PSYCHOTIC DISORDER
     Route: 048
     Dates: start: 20090701, end: 20100427
  3. CLOZAPINE [Suspect]
     Route: 048
     Dates: start: 20090701, end: 20100427
  4. CLOZAPINE [Suspect]
     Route: 048
     Dates: start: 20090701, end: 20100427
  5. LANTUS /01483501/ [Concomitant]
  6. DEPAKOTE [Concomitant]
  7. LIPITOR [Concomitant]
  8. TOPAMAX [Concomitant]
  9. ZYRTEC [Concomitant]
  10. IRON [Concomitant]
  11. SYNTHROID [Concomitant]
     Indication: HYPOTHYROIDISM
  12. ZOLOFT [Concomitant]

REACTIONS (2)
  - AGRANULOCYTOSIS [None]
  - DIABETIC KETOACIDOSIS [None]
